FAERS Safety Report 4292271-X (Version None)
Quarter: 2004Q1

REPORT INFORMATION
  Report Type: 
  Country: None (occurrence: None)
  Receive Date: 20040126
  Receipt Date: 20030915
  Transmission Date: 20041129
  Serious: No
  Sender: FDA-Public Use
  Company Number: USA030742507

PATIENT
  Age: 69 Year
  Sex: Female
  Weight: 50 kg

DRUGS (7)
  1. FORTEO [Suspect]
     Indication: OSTEOPOROSIS
     Dosage: 20UG/ DAY
     Dates: start: 20030530, end: 20030717
  2. PERCODAN [Concomitant]
  3. ASPIRIN [Concomitant]
  4. MULTIVITAMIN [Concomitant]
  5. FOSAMAX [Concomitant]
  6. MAGNESIUM GLUCONATE [Concomitant]
     Dates: end: 20030501
  7. CALCIUM/MAGNESIUM/VITAMIN D [Concomitant]
     Dates: end: 20030501

REACTIONS (4)
  - BLOOD 1,25-DIHYDROXYCHOLECALCIFEROL INCREASED [None]
  - BLOOD CALCIUM INCREASED [None]
  - HYPERCALCIURIA [None]
  - NAUSEA [None]
